FAERS Safety Report 5251505-5 (Version None)
Quarter: 2007Q1

REPORT INFORMATION
  Report Type: 
  Country: None (occurrence: None)
  Receive Date: 20070228
  Receipt Date: 20060518
  Transmission Date: 20070707
  Serious: No
  Sender: FDA-Public Use
  Company Number: US-GLAXOSMITHKLINE-A0606227A

PATIENT
  Age: 50 Year
  Sex: Female

DRUGS (7)
  1. LAMICTAL [Suspect]
     Indication: BIPOLAR DISORDER
     Dosage: 125MG PER DAY
     Route: 048
     Dates: start: 20060301
  2. DEPAKOTE [Concomitant]
  3. SINGULAIR [Concomitant]
  4. AMBIEN [Concomitant]
  5. SEROQUEL [Concomitant]
  6. ADVAIR DISKUS 100/50 [Concomitant]
  7. LITHIUM CARBONATE [Concomitant]

REACTIONS (1)
  - PRURITUS GENERALISED [None]
